FAERS Safety Report 7802832-6 (Version None)
Quarter: 2011Q4

REPORT INFORMATION
  Report Type: 
  Country: None (occurrence: None)
  Receive Date: 20111007
  Receipt Date: 20110929
  Transmission Date: 20120403
  Serious: Yes (Life-Threatening)
  Sender: FDA-Public Use
  Company Number: JP-AMGEN-JPNCT2011046190

PATIENT
  Age: 83 Year
  Sex: Male
  Weight: 45 kg

DRUGS (6)
  1. PANITUMUMAB [Suspect]
     Dosage: 300 MG, Q2WK
     Route: 041
     Dates: start: 20110113, end: 20110816
  2. OXALIPLATIN [Concomitant]
     Indication: COLORECTAL CANCER
     Route: 041
     Dates: start: 20101216, end: 20110421
  3. ALOXI [Concomitant]
     Route: 041
     Dates: start: 20101005, end: 20110421
  4. FLUOROURACIL [Concomitant]
     Indication: COLORECTAL CANCER
     Route: 041
     Dates: start: 20101216, end: 20110421
  5. PANITUMUMAB [Suspect]
     Indication: COLORECTAL CANCER
     Dosage: 300 MG, Q2WK
     Route: 041
     Dates: start: 20101216, end: 20101216
  6. LEVOLEUCOVORIN CALCIUM [Concomitant]
     Indication: COLORECTAL CANCER
     Route: 041
     Dates: start: 20101216, end: 20110421

REACTIONS (3)
  - DECREASED APPETITE [None]
  - AORTIC ANEURYSM [None]
  - SKIN FISSURES [None]
